FAERS Safety Report 7101309-3 (Version None)
Quarter: 2010Q4

REPORT INFORMATION
  Report Type: 
  Country: None (occurrence: None)
  Receive Date: 20101105
  Receipt Date: 20101021
  Transmission Date: 20110411
  Serious: Yes (Hospitalization)
  Sender: FDA-Public Use
  Company Number: 020802

PATIENT
  Sex: Female
  Weight: 78 kg

DRUGS (17)
  1. CIMZIA [Suspect]
     Indication: CROHN'S DISEASE
     Dosage: (400 MG 1X/4 WEEKS SUBCUTANEOUS)
     Route: 058
     Dates: start: 20100115
  2. ETOCORT [Concomitant]
  3. ZOLOFT [Concomitant]
  4. XANAX [Concomitant]
  5. NORVASC [Concomitant]
  6. ZANAFLEX [Concomitant]
  7. COUMADIN [Concomitant]
  8. HYDROCORTISONE [Concomitant]
  9. PLAQUENIL [Concomitant]
  10. POTASSIUM CHLORIDE [Concomitant]
  11. LOMOTIL /00034001/ [Concomitant]
  12. PHENERGAN HCL [Concomitant]
  13. AMBIEN [Concomitant]
  14. CLOBETASOL PROPIONATE [Concomitant]
  15. NYSTATIN [Concomitant]
  16. NEXIUM /01479303/ [Concomitant]
  17. PEPCID AC [Concomitant]

REACTIONS (4)
  - ARTHRALGIA [None]
  - PYREXIA [None]
  - TOOTH EXTRACTION [None]
  - WEIGHT INCREASED [None]
